FAERS Safety Report 14908348 (Version 1)
Quarter: 2018Q2

REPORT INFORMATION
  Report Type: Report from Study
  Country: IN (occurrence: IN)
  Receive Date: 20180517
  Receipt Date: 20180517
  Transmission Date: 20180711
  Serious: Yes (Death, Hospitalization)
  Sender: FDA-Public Use
  Company Number: IN-CELGENEUS-IND-20180502936

PATIENT
  Age: 50 Year
  Sex: Female
  Weight: 72 kg

DRUGS (8)
  1. AMLODAC AT [Concomitant]
     Indication: HYPERTENSION
     Dosage: 5/50MG
     Route: 065
     Dates: start: 2009, end: 20180425
  2. ONDEM [Concomitant]
     Indication: PROPHYLAXIS OF NAUSEA AND VOMITING
     Dosage: 16 MILLIGRAM
     Route: 048
     Dates: start: 20180421
  3. ABRAXANE [Suspect]
     Active Substance: PACLITAXEL
     Indication: BREAST CANCER METASTATIC
     Route: 041
     Dates: start: 20180421, end: 20180421
  4. ESMODEN-DSR [Concomitant]
     Indication: PROPHYLAXIS
     Dosage: 140 MILLIGRAM
     Route: 048
     Dates: start: 20180421
  5. FILGRASTIM [Concomitant]
     Active Substance: FILGRASTIM
     Indication: PROPHYLAXIS
     Dosage: 30000000 IU (INTERNATIONAL UNIT)
     Route: 058
     Dates: start: 20180422, end: 20180424
  6. ACLOZEN-SP [Concomitant]
     Indication: PAIN PROPHYLAXIS
     Dosage: 906 MILLIGRAM
     Route: 048
     Dates: start: 20180421, end: 20180425
  7. PACLITAXEL INJECTION CONCENTRATE FOR NANO DISPERSION [Suspect]
     Active Substance: PACLITAXEL
     Indication: BREAST CANCER METASTATIC
     Route: 065
  8. THYROX [Concomitant]
     Indication: HYPOTHYROIDISM
     Route: 065
     Dates: start: 2010, end: 20180425

REACTIONS (3)
  - Sepsis [Fatal]
  - Pulmonary embolism [Fatal]
  - Disseminated intravascular coagulation [Fatal]

NARRATIVE: CASE EVENT DATE: 20180425
